FAERS Safety Report 5195529-5 (Version None)
Quarter: 2006Q4

REPORT INFORMATION
  Report Type: 
  Country: None (occurrence: None)
  Receive Date: 20061222
  Receipt Date: 20061222
  Transmission Date: 20070319
  Serious: Yes (Hospitalization)
  Sender: FDA-Public Use
  Company Number: None

PATIENT
  Sex: Male

DRUGS (1)
  1. CEPHALEXIN [Suspect]
     Dosage: UNKNOWN  UNKNOWN  PO
     Route: 048

REACTIONS (11)
  - CELLULITIS [None]
  - CHILLS [None]
  - DRUG HYPERSENSITIVITY [None]
  - JOINT SWELLING [None]
  - OEDEMA PERIPHERAL [None]
  - PAIN IN EXTREMITY [None]
  - PETECHIAE [None]
  - SERUM SICKNESS [None]
  - SKIN LESION [None]
  - SKIN MACERATION [None]
  - TREATMENT NONCOMPLIANCE [None]
